FAERS Safety Report 4461134-9 (Version None)
Quarter: 2004Q3

REPORT INFORMATION
  Report Type: 
  Country: None (occurrence: None)
  Receive Date: 20040923
  Receipt Date: 20040916
  Transmission Date: 20050211
  Serious: Yes (Hospitalization)
  Sender: FDA-Public Use
  Company Number: 0400003EN0010P

PATIENT
  Age: 10 Year
  Sex: Male
  Weight: 51 kg

DRUGS (1)
  1. ADAGEN [Suspect]
     Indication: COMBINED IMMUNODEFICIENCY
     Dosage: 500 U TWICE WEEKLY IM
     Route: 030
     Dates: start: 20030101

REACTIONS (1)
  - LYMPHOMA [None]
